FAERS Safety Report 10060862 (Version 2)
Quarter: 2014Q2

REPORT INFORMATION
  Report Type: Report from Study
  Country: CA (occurrence: CA)
  Receive Date: 20140404
  Receipt Date: 20140414
  Transmission Date: 20141212
  Serious: Yes (Other)
  Sender: FDA-Public Use
  Company Number: CA-ABBVIE-14P-028-1218116-00

PATIENT
  Age: 75 Year
  Sex: Female
  Weight: 94.43 kg

DRUGS (3)
  1. HUMIRA [Suspect]
     Indication: RHEUMATOID ARTHRITIS
     Route: 058
     Dates: start: 20120919, end: 2014
  2. HUMIRA [Suspect]
     Route: 058
     Dates: start: 20140326
  3. UNSPECIFIED [Concomitant]
     Indication: PRODUCT USED FOR UNKNOWN INDICATION

REACTIONS (3)
  - Joint range of motion decreased [Recovered/Resolved]
  - Rotator cuff repair [Recovered/Resolved]
  - Injection site erythema [Not Recovered/Not Resolved]
